FAERS Safety Report 4594753-X (Version None)
Quarter: 2005Q1

REPORT INFORMATION
  Report Type: 
  Country: None (occurrence: None)
  Receive Date: 20050223
  Receipt Date: 20050210
  Transmission Date: 20050727
  Serious: Yes (Other)
  Sender: FDA-Public Use
  Company Number: HQWYE565206OCT04

PATIENT
  Age: 52 Year
  Sex: Female
  Weight: 60.84 kg

DRUGS (4)
  1. EFFEXOR XR [Suspect]
     Indication: DEPRESSION
     Dosage: 225 MG 1X PER 1 DAY, ORAL
     Route: 048
     Dates: start: 20040701, end: 20041001
  2. LITHIUM (LITHIUM) [Concomitant]
  3. ZOCOR [Concomitant]
  4. RISPERDAL [Concomitant]

REACTIONS (3)
  - GINGIVAL ULCERATION [None]
  - HYPERKERATOSIS [None]
  - TONGUE ULCERATION [None]
